FAERS Safety Report 8840952 (Version 1)
Quarter: 2012Q4

REPORT INFORMATION
  Report Type: 
  Country: US (occurrence: US)
  Receive Date: 20121015
  Receipt Date: 20121015
  Transmission Date: 20130627
  Serious: Yes (Hospitalization, Other)
  Sender: FDA-Public Use
  Company Number: US-PFIZER INC-2012250642

PATIENT
  Age: 13 Month
  Sex: Female

DRUGS (3)
  1. METHSUXIMIDE [Suspect]
     Indication: MYOCLONIC EPILEPSY
     Dosage: 300 mg, 3x/day
  2. PHENYTOIN [Suspect]
     Indication: MYOCLONIC EPILEPSY
     Dosage: 30 mg, 4x/day
  3. PHENOBARBITAL [Suspect]
     Indication: MYOCLONIC EPILEPSY
     Dosage: 8 mg, 4x/day

REACTIONS (6)
  - Coma [Unknown]
  - Pulmonary congestion [Unknown]
  - Anticonvulsant drug level increased [None]
  - Myoclonus [None]
  - Convulsion [None]
  - Drug interaction [None]
